FAERS Safety Report 7830777-4 (Version None)
Quarter: 2011Q4

REPORT INFORMATION
  Report Type: 
  Country: None (occurrence: None)
  Receive Date: 20111021
  Receipt Date: 20111018
  Transmission Date: 20120403
  Serious: Yes (Hospitalization, Congenital Anomaly)
  Sender: FDA-Public Use
  Company Number: US-GLAXOSMITHKLINE-A0918315A

PATIENT
  Sex: Female
  Weight: 0.9 kg

DRUGS (2)
  1. PAXIL CR [Suspect]
     Indication: PRODUCT USED FOR UNKNOWN INDICATION
     Route: 064
  2. PAXIL [Suspect]
     Indication: PRODUCT USED FOR UNKNOWN INDICATION
     Route: 064

REACTIONS (6)
  - ATRIAL SEPTAL DEFECT [None]
  - SEPSIS [None]
  - PATENT DUCTUS ARTERIOSUS [None]
  - PREMATURE BABY [None]
  - RESPIRATORY DISTRESS [None]
  - MATERNAL EXPOSURE DURING PREGNANCY [None]
